FAERS Safety Report 7156419-1 (Version None)
Quarter: 2010Q4

REPORT INFORMATION
  Report Type: 
  Country: None (occurrence: None)
  Receive Date: 20101214
  Receipt Date: 20101203
  Transmission Date: 20110411
  Serious: Yes (Other)
  Sender: FDA-Public Use
  Company Number: NL-ROCHE-746967

PATIENT

DRUGS (3)
  1. BEVACIZUMAB [Suspect]
     Indication: RECTAL CANCER STAGE IV
     Route: 065
  2. CAPECITABINE [Suspect]
     Indication: RECTAL CANCER STAGE IV
     Dosage: CYCLES OF 3 WEEKS
     Route: 065
  3. OXALIPLATIN [Suspect]
     Indication: RECTAL CANCER STAGE IV
     Dosage: CYCLES OF 3 WEEKS
     Route: 065

REACTIONS (7)
  - CHOLECYSTITIS [None]
  - CONSTIPATION [None]
  - DIARRHOEA [None]
  - FATIGUE [None]
  - PAIN [None]
  - PALMAR-PLANTAR ERYTHRODYSAESTHESIA SYNDROME [None]
  - THROMBOSIS [None]
